FAERS Safety Report 8984295 (Version 3)
Quarter: 2013Q1

REPORT INFORMATION
  Report Type: Report from Study
  Country: SG (occurrence: SG)
  Receive Date: 20121226
  Receipt Date: 20130116
  Transmission Date: 20140127
  Serious: Yes (Hospitalization)
  Sender: FDA-Public Use
  Company Number: SG-SANOFI-AVENTIS-2012SA093276

PATIENT
  Age: 60 Year
  Sex: Male
  Weight: 62.1 kg

DRUGS (14)
  1. OXALIPLATIN [Suspect]
     Indication: GASTRIC CANCER
     Route: 042
     Dates: start: 20120926
  2. BLINDED THERAPY [Suspect]
     Indication: GASTRIC CANCER
     Dosage: FREQUENCY: Q2S
     Route: 042
     Dates: start: 20120926
  3. FOLINIC ACID [Suspect]
     Indication: GASTRIC CANCER
     Route: 042
     Dates: start: 20120926
  4. FLUOROURACIL [Suspect]
     Indication: GASTRIC CANCER
     Route: 040
     Dates: start: 20120926
  5. FLUOROURACIL [Suspect]
     Indication: GASTRIC CANCER
     Route: 042
     Dates: start: 20120926
  6. CALCIUM GLUCONATE [Concomitant]
     Indication: PROPHYLAXIS
     Route: 042
     Dates: start: 20120926, end: 20121119
  7. MAGNESIUM SULFATE [Concomitant]
     Indication: PROPHYLAXIS
     Route: 042
     Dates: start: 20120926, end: 20121119
  8. GRANISETRON [Concomitant]
     Route: 042
     Dates: start: 20120926, end: 20121119
  9. GRANISETRON [Concomitant]
     Route: 048
     Dates: start: 20120926
  10. DEXAMETHASONE [Concomitant]
     Route: 042
     Dates: start: 20120926, end: 20121119
  11. DEXAMETHASONE [Concomitant]
     Route: 048
     Dates: start: 20120926
  12. METOCLOPRAMIDE [Concomitant]
     Indication: DEHYDRATION
     Route: 048
     Dates: start: 20120926
  13. METOCLOPRAMIDE [Concomitant]
     Indication: DEHYDRATION
     Route: 048
     Dates: start: 20121001
  14. POTASSIUM CHLORIDE [Concomitant]
     Indication: PROPHYLAXIS
     Route: 048
     Dates: start: 20121022

REACTIONS (1)
  - Anaemia [Unknown]
